APPROVED DRUG PRODUCT: DIULO
Active Ingredient: METOLAZONE
Strength: 10MG
Dosage Form/Route: TABLET;ORAL
Application: N018535 | Product #003
Applicant: GD SEARLE LLC
Approved: Approved Prior to Jan 1, 1982 | RLD: No | RS: No | Type: DISCN